FAERS Safety Report 8359437-0 (Version None)
Quarter: 2012Q2

REPORT INFORMATION
  Report Type: 
  Country: None (occurrence: None)
  Receive Date: 20120515
  Receipt Date: 20120507
  Transmission Date: 20120825
  Serious: Yes (Hospitalization, Other)
  Sender: FDA-Public Use
  Company Number: US-BAYER-2012-018056

PATIENT
  Age: 21 Year
  Sex: Female
  Weight: 77.098 kg

DRUGS (10)
  1. YAZ [Suspect]
     Indication: ACNE
     Dosage: UNK
     Dates: start: 20070607, end: 20090630
  2. YASMIN [Suspect]
     Indication: ACNE
     Dosage: UNK
     Dates: start: 20061113, end: 20070607
  3. YASMIN [Suspect]
     Indication: CONTRACEPTION
  4. AMOXICILLIN [Concomitant]
  5. METOPROLOL TARTRATE [Concomitant]
  6. ROCEPHIN [Concomitant]
  7. METFORMIN HCL [Concomitant]
  8. DORYX [Concomitant]
  9. SPIRONOLACTONE [Concomitant]
  10. CEFDINIR [Concomitant]

REACTIONS (4)
  - ARRHYTHMIA [None]
  - GALLBLADDER DISORDER [None]
  - SUPRAVENTRICULAR TACHYCARDIA [None]
  - CHOLECYSTITIS ACUTE [None]
